FAERS Safety Report 20276585 (Version 2)
Quarter: 2022Q1

REPORT INFORMATION
  Report Type: Spontaneous
  Country: US (occurrence: US)
  Receive Date: 20220102
  Receipt Date: 20220124
  Transmission Date: 20220423
  Serious: No
  Sender: FDA-Public Use
  Company Number: US-BEH-2021139969

PATIENT
  Age: 62 Year
  Sex: Female

DRUGS (1)
  1. HIZENTRA [Suspect]
     Active Substance: HUMAN IMMUNOGLOBULIN G
     Dosage: 20 GRAM, QW
     Route: 065

REACTIONS (6)
  - Injection site pain [Unknown]
  - Injection site pruritus [Unknown]
  - Peripheral swelling [Unknown]
  - Chills [Unknown]
  - Headache [Unknown]
  - Lethargy [Unknown]

NARRATIVE: CASE EVENT DATE: 20211209
